FAERS Safety Report 9088412 (Version 1)
Quarter: 2013Q1

REPORT INFORMATION
  Report Type: Spontaneous
  Country: IT (occurrence: IT)
  Receive Date: 20130201
  Receipt Date: 20130201
  Transmission Date: 20140127
  Serious: Yes (Hospitalization)
  Sender: FDA-Public Use
  Company Number: IT-TEVA-382767ISR

PATIENT
  Age: 78 Year
  Sex: Male

DRUGS (6)
  1. AMIODARONE [Suspect]
     Dosage: 200 MILLIGRAM DAILY;
     Dates: start: 20090101, end: 20121226
  2. AMIODARONE [Suspect]
     Dosage: 1 DOSAGE FORMS DAILY;
     Route: 048
     Dates: start: 20090901, end: 20121226
  3. COUMADIN [Suspect]
     Dosage: 1 DOSAGE FORMS DAILY;
     Route: 048
     Dates: start: 20090901, end: 20121226
  4. BEZALIP [Concomitant]
  5. SERETIDE [Concomitant]
     Dosage: SALMETEROL 25 MCG + FLUTICASONE 125 MCG
  6. SPIRIVA [Concomitant]

REACTIONS (3)
  - Subdural haematoma [Unknown]
  - Headache [Unknown]
  - Presyncope [Unknown]
